FAERS Safety Report 18045429 (Version 1)
Quarter: 2020Q3

REPORT INFORMATION
  Report Type: Spontaneous
  Country: US (occurrence: US)
  Receive Date: 20200720
  Receipt Date: 20200720
  Transmission Date: 20201103
  Serious: Yes (Life-Threatening, Hospitalization)
  Sender: FDA-Public Use
  Company Number: US-THE PROACTIV LLC-2087515

PATIENT
  Age: 13 Year
  Sex: Male

DRUGS (5)
  1. PROACTIV SOLUTION DEEP CLEANSING WASH [Suspect]
     Active Substance: SALICYLIC ACID
     Route: 061
     Dates: start: 202001, end: 202001
  2. PROACTIV MD ADAPALENE ACNE TREATMENT [Concomitant]
     Active Substance: ADAPALENE
     Route: 061
     Dates: start: 202001, end: 202001
  3. PROACTIV MD DEEP CLEANSING FACE WASH?COSMETIC [Concomitant]
     Route: 061
     Dates: start: 202001, end: 202001
  4. PROACTIV MD DAILY OIL CONTROL SPF 30 [Concomitant]
     Active Substance: AVOBENZONE\OCTISALATE\OCTOCRYLENE
     Route: 061
     Dates: start: 202001, end: 202001
  5. PROACTIV REDNESS RELIEF SERUM?COSMETIC [Concomitant]
     Route: 061
     Dates: start: 202001, end: 202001

REACTIONS (4)
  - Erythema [Recovered/Resolved]
  - Anaphylactic shock [Recovered/Resolved]
  - Hypersensitivity [Recovered/Resolved]
  - Pharyngeal swelling [Recovered/Resolved]

NARRATIVE: CASE EVENT DATE: 202001
